FAERS Safety Report 6893423-2 (Version None)
Quarter: 2010Q3

REPORT INFORMATION
  Report Type: 
  Country: None (occurrence: None)
  Receive Date: 20100731
  Receipt Date: 20090906
  Transmission Date: 20110219
  Serious: No
  Sender: FDA-Public Use
  Company Number: US-PFIZER INC-2007018835

PATIENT
  Sex: Female
  Weight: 56.689 kg

DRUGS (10)
  1. LIPITOR [Suspect]
     Indication: BLOOD CHOLESTEROL INCREASED
     Dosage: 20 MG, 1X/DAY
     Dates: start: 20061101, end: 20070302
  2. CHANTIX [Suspect]
     Indication: SMOKING CESSATION THERAPY
     Dosage: 1 MG, 2X/DAY
     Dates: start: 20090415
  3. CHANTIX [Suspect]
     Dosage: UNK
     Dates: start: 20061101, end: 20070502
  4. ZYPREXA [Concomitant]
     Dosage: UNK
  5. CRESTOR [Concomitant]
     Dosage: UNK
  6. VALIUM [Concomitant]
     Dosage: UNK
  7. SIMVASTATIN [Concomitant]
     Dosage: UNK
  8. MONTELUKAST SODIUM [Concomitant]
     Dosage: UNK
  9. MAXZIDE [Concomitant]
     Dosage: UNK
  10. TOPROL-XL [Concomitant]
     Dosage: UNK

REACTIONS (6)
  - BLOOD CHOLESTEROL INCREASED [None]
  - COGNITIVE DISORDER [None]
  - DISORIENTATION [None]
  - DRUG INEFFECTIVE [None]
  - FEELING JITTERY [None]
  - IMPAIRED WORK ABILITY [None]
